FAERS Safety Report 5376721-3 (Version None)
Quarter: 2007Q2

REPORT INFORMATION
  Report Type: 
  Country: None (occurrence: None)
  Receive Date: 20070629
  Receipt Date: 20070629
  Transmission Date: 20071010
  Serious: Yes (Other)
  Sender: FDA-Public Use
  Company Number: None

PATIENT
  Sex: Female
  Weight: 14.1 kg

DRUGS (18)
  1. ANIDULAFUNGIN [Suspect]
     Indication: ANTIFUNGAL PROPHYLAXIS
     Dosage: 50 MG DAILY IV
     Route: 042
     Dates: start: 20070525, end: 20070529
  2. LANSOPRAZOLE [Concomitant]
  3. PREDNISOLONE/PREDNISONE [Concomitant]
  4. AMLODIPINE [Concomitant]
  5. PENICILLIN VK [Concomitant]
  6. ONDANSETRON [Concomitant]
  7. ACETAMINOPHEN [Concomitant]
  8. CIPROFLOXACIN [Concomitant]
  9. ANTITHYMOCYTE IMMUNOGLOBULIN -RABBIT- [Concomitant]
  10. FLUDARABINE PHOSPHATE [Concomitant]
  11. MELPHALAN [Concomitant]
  12. ACYCLOVIR [Concomitant]
  13. VANCOMYCIN HCL [Concomitant]
  14. GENTAMICIN [Concomitant]
  15. TIMENTIN [Concomitant]
  16. TACROLIMUS [Concomitant]
  17. MORPHINE [Concomitant]
  18. LORAZEPAM [Concomitant]

REACTIONS (4)
  - INCORRECT DOSE ADMINISTERED [None]
  - MEDICATION ERROR [None]
  - PANCREATITIS [None]
  - WRONG TECHNIQUE IN DRUG USAGE PROCESS [None]
